FAERS Safety Report 9222559 (Version 1)
Quarter: 2013Q2

REPORT INFORMATION
  Report Type: Spontaneous
  Country: GB (occurrence: GB)
  Receive Date: 20130410
  Receipt Date: 20130410
  Transmission Date: 20140414
  Serious: Yes (Life-Threatening, Other)
  Sender: FDA-Public Use
  Company Number: GB-ROCHE-1205998

PATIENT
  Age: 54 Year
  Sex: Female
  Weight: 66.3 kg

DRUGS (6)
  1. METALYSE [Suspect]
     Indication: ACUTE MYOCARDIAL INFARCTION
     Dosage: ONLY ONE DOSE GIVEN
     Route: 042
     Dates: start: 20030217, end: 20030217
  2. METOCLOPRAMIDE HYDROCHLORIDE [Concomitant]
     Indication: NAUSEA
     Dosage: AT 22.5 HOURS
     Route: 065
     Dates: start: 20030217
  3. HEPARIN [Concomitant]
     Dosage: BOLUS 22.5 HOURS THEN 12HRLY
     Route: 042
     Dates: start: 20030217
  4. ENOXAPARIN [Concomitant]
     Dosage: GIVEN AT 22.5 HOURS
     Route: 058
     Dates: start: 20030217
  5. DIMORPHOLAMINE [Concomitant]
     Indication: CHEST PAIN
     Dosage: 22.50 HOURS
     Route: 042
     Dates: start: 20030217
  6. ASPIRIN [Concomitant]
     Indication: ACUTE MYOCARDIAL INFARCTION
     Dosage: STAT DOSE
     Route: 048

REACTIONS (3)
  - Drug ineffective [Recovered/Resolved]
  - Electrocardiogram ST segment elevation [Recovered/Resolved]
  - Chest pain [Recovered/Resolved]
